FAERS Safety Report 15761844 (Version 1)
Quarter: 2018Q4

REPORT INFORMATION
  Report Type: Spontaneous
  Country: US (occurrence: US)
  Receive Date: 20181226
  Receipt Date: 20181226
  Transmission Date: 20190205
  Serious: No
  Sender: FDA-Public Use
  Company Number: US-SUNOVION-2018SUN004900

PATIENT
  Sex: Female

DRUGS (3)
  1. LATUDA [Suspect]
     Active Substance: LURASIDONE HYDROCHLORIDE
     Dosage: 40 MG
     Route: 048
  2. LAMICTAL [Interacting]
     Active Substance: LAMOTRIGINE
     Dosage: UNK
  3. LATUDA [Interacting]
     Active Substance: LURASIDONE HYDROCHLORIDE
     Dosage: UNK UNSPECIFIED LOWER DOSE
     Route: 048

REACTIONS (9)
  - Panic attack [Unknown]
  - Blepharospasm [Unknown]
  - Confusional state [Unknown]
  - Hypertension [Unknown]
  - Vision blurred [Unknown]
  - Influenza like illness [Unknown]
  - Presyncope [Unknown]
  - Drug interaction [Unknown]
  - Tremor [Unknown]
